FAERS Safety Report 6952173-4 (Version None)
Quarter: 2010Q3

REPORT INFORMATION
  Report Type: 
  Country: None (occurrence: None)
  Receive Date: 20100829
  Receipt Date: 20100421
  Transmission Date: 20110219
  Serious: No
  Sender: FDA-Public Use
  Company Number: US-ABBOTT-10P-163-0641069-00

PATIENT
  Sex: Female
  Weight: 99.88 kg

DRUGS (6)
  1. NIASPAN [Suspect]
     Indication: BLOOD CHOLESTEROL INCREASED
     Route: 048
     Dates: start: 20100416
  2. ASPIRIN [Concomitant]
     Indication: FLUSHING
     Route: 048
  3. ASPIRIN [Concomitant]
     Indication: PROPHYLAXIS
  4. NITROGLYCERIN [Concomitant]
     Indication: CHEST PAIN
     Route: 060
     Dates: start: 20020101
  5. LANTUS [Concomitant]
     Indication: DIABETES MELLITUS
     Dosage: 60 UNITS AM AND 80 UNITS PM
     Route: 058
  6. NOVOLIN 70/30 [Concomitant]
     Indication: DIABETES MELLITUS
     Dosage: SLIDING SCALE- BEFORE MEALS 3 TIMES DAILY
     Route: 058

REACTIONS (2)
  - FEELING HOT [None]
  - PRURITUS [None]
